FAERS Safety Report 9333784 (Version 2)
Quarter: 2013Q2

REPORT INFORMATION
  Report Type: Spontaneous
  Country: JP (occurrence: JP)
  Receive Date: 20130606
  Receipt Date: 20130618
  Transmission Date: 20140414
  Serious: Yes (Other)
  Sender: FDA-Public Use
  Company Number: JP-OTSUKA-JP-2013-12076

PATIENT
  Age: 4 Year
  Sex: Female

DRUGS (4)
  1. PLETAAL [Suspect]
     Indication: CEREBRAL INFARCTION
     Route: 048
  2. EDARAVONE [Concomitant]
     Route: 041
  3. GLYCEOL [Concomitant]
     Route: 041
  4. DECADRON [Concomitant]
     Route: 065

REACTIONS (2)
  - Transient ischaemic attack [Recovering/Resolving]
  - Somnolence [Recovering/Resolving]
